FAERS Safety Report 6792886-0 (Version None)
Quarter: 2010Q2

REPORT INFORMATION
  Report Type: 
  Country: None (occurrence: None)
  Receive Date: 20100624
  Receipt Date: 20081209
  Transmission Date: 20101027
  Serious: Yes (Other)
  Sender: FDA-Public Use
  Company Number: US-PFIZER INC-2008090064

PATIENT
  Sex: Female

DRUGS (6)
  1. DEPO-SUBQ PROVERA 104 [Suspect]
     Indication: CONTRACEPTION
     Dosage: FIRST INJECTION
     Route: 058
     Dates: start: 20070111, end: 20070111
  2. DEPO-SUBQ PROVERA 104 [Suspect]
     Route: 058
     Dates: start: 20070404, end: 20070404
  3. DEPO-SUBQ PROVERA 104 [Suspect]
     Route: 058
     Dates: start: 20070626, end: 20070626
  4. DEPO-SUBQ PROVERA 104 [Suspect]
     Route: 058
     Dates: start: 20070917, end: 20070917
  5. DEPO-SUBQ PROVERA 104 [Suspect]
     Route: 058
     Dates: start: 20071210, end: 20071210
  6. DEPO-SUBQ PROVERA 104 [Suspect]
     Dosage: LAST INJECTION
     Route: 058
     Dates: start: 20080303, end: 20080303

REACTIONS (2)
  - DRUG INEFFECTIVE [None]
  - UNINTENDED PREGNANCY [None]
